FAERS Safety Report 8539650-X (Version None)
Quarter: 2012Q3

REPORT INFORMATION
  Report Type: 
  Country: None (occurrence: None)
  Receive Date: 20120726
  Receipt Date: 20120723
  Transmission Date: 20120928
  Serious: Yes (Hospitalization)
  Sender: FDA-Public Use
  Company Number: AU-UCBSA-058113

PATIENT
  Age: 62 Year
  Sex: Male
  Weight: 92.5 kg

DRUGS (1)
  1. CIMZIA [Suspect]
     Route: 058
     Dates: start: 20090601, end: 20120207

REACTIONS (1)
  - SCIATICA [None]
